FAERS Safety Report 9642081 (Version 2)
Quarter: 2013Q4

REPORT INFORMATION
  Report Type: Report from Study
  Country: JP (occurrence: JP)
  Receive Date: 20131023
  Receipt Date: 20131023
  Transmission Date: 20140711
  Serious: No
  Sender: FDA-Public Use
  Company Number: JP-ABBVIE-12P-087-0972743-00

PATIENT
  Age: 72 Year
  Sex: Female
  Weight: 60 kg

DRUGS (9)
  1. HUMIRA [Suspect]
     Indication: RHEUMATOID ARTHRITIS
     Route: 058
     Dates: start: 20120410, end: 20120424
  2. HUMIRA [Suspect]
     Dates: start: 20120512, end: 20120608
  3. HUMIRA [Suspect]
     Dates: start: 20130104
  4. PREDNISOLONE [Concomitant]
     Indication: RHEUMATOID ARTHRITIS
     Dosage: 2 MG DAILY
     Route: 048
     Dates: start: 20111031, end: 20120608
  5. PREDNISOLONE [Concomitant]
     Dosage: 3 MG DAILY
     Dates: start: 20120609
  6. PREDNISOLONE [Concomitant]
     Dates: start: 20120608, end: 20120906
  7. BUCILLAMINE [Concomitant]
     Indication: RHEUMATOID ARTHRITIS
     Dosage: 200 MG DAILY
     Route: 048
     Dates: start: 20110520
  8. BUCILLAMINE [Concomitant]
     Dates: end: 20120906
  9. INFLUENZA HA VACCINE [Concomitant]
     Indication: IMMUNISATION
     Route: 058
     Dates: start: 20121101, end: 20121101

REACTIONS (4)
  - Seborrhoeic keratosis [Recovering/Resolving]
  - Upper respiratory tract inflammation [Recovered/Resolved]
  - Gastritis [Recovered/Resolved]
  - Tinea pedis [Recovering/Resolving]
